FAERS Safety Report 16677410 (Version 1)
Quarter: 2019Q3

REPORT INFORMATION
  Report Type: Spontaneous
  Country: GB (occurrence: GB)
  Receive Date: 20190807
  Receipt Date: 20190807
  Transmission Date: 20191004
  Serious: Yes (Other)
  Sender: FDA-Public Use
  Company Number: GB-PFIZER INC-2019332262

PATIENT
  Age: 71 Year
  Sex: Male
  Weight: 97 kg

DRUGS (10)
  1. CANDESARTAN. [Concomitant]
     Active Substance: CANDESARTAN
     Indication: HYPERTENSION
     Dosage: 1 DF, 1X/DAY
     Dates: start: 20181030
  2. AMLODIPINE [Concomitant]
     Active Substance: AMLODIPINE BESYLATE
     Indication: HYPERTENSION
     Dosage: 1 DF, 1X/DAY
     Dates: start: 20181030
  3. FUROSEMIDE. [Concomitant]
     Active Substance: FUROSEMIDE
     Dosage: 1 DF, 1X/DAY (EACH MORNING)
     Dates: start: 20190702
  4. LINAGLIPTIN [Concomitant]
     Active Substance: LINAGLIPTIN
     Dosage: 1 DF, 1X/DAY
     Dates: start: 20181030
  5. DOXYCYCLINE. [Concomitant]
     Active Substance: DOXYCYCLINE
     Dosage: TAKE TWO  IMMEDIATELY THEN ONE ONCE A DAY
     Dates: start: 20190528, end: 20190604
  6. AMOXICILLIN. [Concomitant]
     Active Substance: AMOXICILLIN
     Indication: ANTIBIOTIC THERAPY
     Dosage: 3 DF, 1X/DAY
     Dates: start: 20190307
  7. BUTEC [Concomitant]
     Active Substance: BUPRENORPHINE
     Dosage: 1 DF, WEEKLY (REMOVE AND DISCARD OLD PATCH)
     Dates: start: 20190625
  8. GABAPENTIN. [Suspect]
     Active Substance: GABAPENTIN
     Dosage: 600 MG, UNK
  9. PREGABALIN. [Concomitant]
     Active Substance: PREGABALIN
     Dosage: 2 DF, 1X/DAY
     Dates: start: 20190328
  10. LUPRON DEPOT [Concomitant]
     Active Substance: LEUPROLIDE ACETATE
     Dosage: USE AS DIRECTED
     Dates: start: 20190307

REACTIONS (1)
  - Fluid retention [Recovering/Resolving]
